FAERS Safety Report 12891712 (Version 1)
Quarter: 2016Q4

REPORT INFORMATION
  Report Type: Spontaneous
  Country: US (occurrence: US)
  Receive Date: 20161028
  Receipt Date: 20161028
  Transmission Date: 20170207
  Serious: No
  Sender: FDA-Public Use
  Company Number: US-TEVA-705809USA

PATIENT
  Age: 73 Year
  Sex: Female
  Weight: 56.75 kg

DRUGS (2)
  1. RALOXIFENE. [Suspect]
     Active Substance: RALOXIFENE
     Indication: BONE DENSITY DECREASED
     Dates: start: 20160807, end: 20160902
  2. ELIQUIS [Concomitant]
     Active Substance: APIXABAN

REACTIONS (2)
  - Back pain [Recovered/Resolved]
  - Hot flush [Recovered/Resolved]

NARRATIVE: CASE EVENT DATE: 201608
